FAERS Safety Report 17343705 (Version 1)
Quarter: 2020Q1

REPORT INFORMATION
  Report Type: Spontaneous
  Country: FR (occurrence: FR)
  Receive Date: 20200129
  Receipt Date: 20200129
  Transmission Date: 20200409
  Serious: Yes (Other)
  Sender: FDA-Public Use
  Company Number: FR-MYLANLABS-2020M1010216

PATIENT
  Age: 39 Year
  Sex: Male

DRUGS (4)
  1. REMICADE [Suspect]
     Active Substance: INFLIXIMAB
     Indication: PSORIASIS
     Dosage: CF COMMENTAIRES
     Route: 041
     Dates: start: 20120831, end: 20140715
  2. METHOTREXATE. [Suspect]
     Active Substance: METHOTREXATE
     Indication: PSORIASIS
     Dosage: 20 MILLIGRAM, QW
     Route: 065
     Dates: start: 2010, end: 2012
  3. HUMIRA [Suspect]
     Active Substance: ADALIMUMAB
     Indication: PSORIASIS
     Dosage: NON PRECISEE
     Route: 058
     Dates: start: 2014, end: 201402
  4. STELARA [Suspect]
     Active Substance: USTEKINUMAB
     Indication: PSORIASIS
     Dosage: 90 MILLIGRAM (EVERY 12 WEEKS)
     Route: 058
     Dates: start: 2014, end: 201910

REACTIONS (1)
  - Chronic lymphocytic leukaemia [Not Recovered/Not Resolved]

NARRATIVE: CASE EVENT DATE: 20191031
